FAERS Safety Report 9434515 (Version 1)
Quarter: 2013Q3

REPORT INFORMATION
  Report Type: Spontaneous
  Country: US (occurrence: None)
  Receive Date: 20130729
  Receipt Date: 20130729
  Transmission Date: 20140515
  Serious: Yes (Death, Life-Threatening)
  Sender: FDA-Public Use
  Company Number: 1713747-2013-99923

PATIENT
  Age: 63 Year
  Sex: Male

DRUGS (5)
  1. 0.9% SODIUM CHLORIDE INJECTION, USP IN MINI-BAG PLUS CONTAINER [Suspect]
     Indication: FLUID REPLACEMENT
     Route: 042
  2. FRESENIUS 2008K2 HEMODIALYSIS MACHINE [Concomitant]
  3. FRESENIUS COMBISET [Concomitant]
  4. FRESENIUS 180 DIALYZER [Concomitant]
  5. FRESENIUS COLLECTIVE CONCENTRATE - NATURALYTE [Concomitant]

REACTIONS (4)
  - Blood pressure systolic increased [None]
  - Convulsion [None]
  - Unresponsive to stimuli [None]
  - Cardio-respiratory arrest [None]
